FAERS Safety Report 5924914-6 (Version None)
Quarter: 2008Q4

REPORT INFORMATION
  Report Type: 
  Country: None (occurrence: None)
  Receive Date: 20081017
  Receipt Date: 20081017
  Transmission Date: 20090506
  Serious: No
  Sender: FDA-Public Use
  Company Number: None

PATIENT
  Age: 14 Year
  Sex: Female
  Weight: 56.6996 kg

DRUGS (1)
  1. ARISTOCORT [Suspect]
     Indication: DRUG HYPERSENSITIVITY
     Dosage: 40 MG SINGLE INJECTION
     Dates: start: 20080111, end: 20080111

REACTIONS (7)
  - ABDOMINAL PAIN UPPER [None]
  - APPETITE DISORDER [None]
  - ARTHRALGIA [None]
  - FATIGUE [None]
  - INDURATION [None]
  - INJECTION SITE PAIN [None]
  - MENSTRUATION IRREGULAR [None]
